FAERS Safety Report 4356800-X (Version None)
Quarter: 2004Q2

REPORT INFORMATION
  Report Type: 
  Country: None (occurrence: None)
  Receive Date: 20040507
  Receipt Date: 20040419
  Transmission Date: 20050107
  Serious: Yes (Other)
  Sender: FDA-Public Use
  Company Number: USA040361980

PATIENT
  Age: 70 Year
  Sex: Female

DRUGS (8)
  1. EVISTA [Suspect]
     Indication: OSTEOPOROSIS
     Dosage: 60 MG/1 DAY
     Dates: start: 20001001
  2. ACTONEL [Concomitant]
  3. CALCIUM [Concomitant]
  4. FOLATE SODIUM [Concomitant]
  5. METHOTREXATE [Concomitant]
  6. THYROXINE [Concomitant]
  7. MAXZIDE [Concomitant]
  8. PREDNISONE [Concomitant]

REACTIONS (2)
  - BACK PAIN [None]
  - FRACTURE [None]
